FAERS Safety Report 5186277-6 (Version None)
Quarter: 2006Q4

REPORT INFORMATION
  Report Type: 
  Country: None (occurrence: None)
  Receive Date: 20061213
  Receipt Date: 20061120
  Transmission Date: 20070319
  Serious: Yes (Hospitalization)
  Sender: FDA-Public Use
  Company Number: 30611

PATIENT
  Age: 75 Year
  Sex: Male

DRUGS (6)
  1. FLECAINIDE ACETATE [Suspect]
     Indication: ATRIAL FIBRILLATION
     Dosage: ORAL
     Route: 048
     Dates: end: 20061001
  2. RAMIPRIL [Concomitant]
  3. PRAVASTATIN [Concomitant]
  4. MODOPAR (LEVODOPA, BENSERAZIDE) [Concomitant]
  5. MODOPAR (LEVODOPA, BENSERAZIDE) [Concomitant]
  6. PREVISCAN (FLUINDIONE) [Concomitant]

REACTIONS (14)
  - ATRIAL FIBRILLATION [None]
  - BUNDLE BRANCH BLOCK RIGHT [None]
  - CARDIAC FAILURE [None]
  - DILATATION ATRIAL [None]
  - DILATATION VENTRICULAR [None]
  - EJECTION FRACTION DECREASED [None]
  - ELECTROCARDIOGRAM QRS COMPLEX PROLONGED [None]
  - ELECTROCARDIOGRAM T WAVE INVERSION [None]
  - HEART RATE IRREGULAR [None]
  - METABOLIC ACIDOSIS [None]
  - MITRAL VALVE INCOMPETENCE [None]
  - OEDEMA PERIPHERAL [None]
  - TROPONIN INCREASED [None]
  - VENTRICULAR TACHYCARDIA [None]
